FAERS Safety Report 5591403-0 (Version None)
Quarter: 2008Q1

REPORT INFORMATION
  Report Type: 
  Country: None (occurrence: None)
  Receive Date: 20080115
  Receipt Date: 20080108
  Transmission Date: 20080703
  Serious: Yes (Other)
  Sender: FDA-Public Use
  Company Number: FR-ASTRAZENECA-2008CG00039

PATIENT
  Age: 26201 Day
  Sex: Female

DRUGS (4)
  1. TENORMIN [Suspect]
     Indication: HYPERTENSION
     Route: 048
     Dates: start: 20070515, end: 20070517
  2. FENOFIBRATE [Concomitant]
  3. MICARDIS [Concomitant]
     Indication: HYPERTENSION
     Dates: end: 20070515
  4. MICARDIS [Concomitant]
     Dates: start: 20070517

REACTIONS (1)
  - CUTANEOUS LUPUS ERYTHEMATOSUS [None]
